FAERS Safety Report 14747131 (Version 1)
Quarter: 2018Q2

REPORT INFORMATION
  Report Type: Spontaneous
  Country: US (occurrence: US)
  Receive Date: 20180411
  Receipt Date: 20180411
  Transmission Date: 20180711
  Serious: No
  Sender: FDA-Public Use
  Company Number: US-ENDO PHARMACEUTICALS INC-2017-004259

PATIENT
  Age: 50 Year
  Sex: Male
  Weight: 89.8 kg

DRUGS (2)
  1. AVEED [Suspect]
     Active Substance: TESTOSTERONE UNDECANOATE
     Indication: TESTICULAR FAILURE
     Dosage: INJECT ON DAY 28 AS PART OF INITIAL TITRATION DOSE, THEN ONCE EVERY TEN WEEKS
     Route: 030
     Dates: start: 20170530
  2. AVEED [Suspect]
     Active Substance: TESTOSTERONE UNDECANOATE
     Dosage: INJECT ON DAY 1 AS PART OF INITIAL TITRATION DOSE
     Route: 030
     Dates: start: 20170502, end: 20170502

REACTIONS (2)
  - Injection site pain [Recovered/Resolved]
  - Product storage error [Unknown]

NARRATIVE: CASE EVENT DATE: 201705
